FAERS Safety Report 6276042-0 (Version None)
Quarter: 2009Q3

REPORT INFORMATION
  Report Type: 
  Country: None (occurrence: None)
  Receive Date: 20090722
  Receipt Date: 20090713
  Transmission Date: 20100115
  Serious: Yes (Hospitalization)
  Sender: FDA-Public Use
  Company Number: FR-BIOGENIDEC-2008BI013795

PATIENT
  Age: 26 Year
  Sex: Female

DRUGS (3)
  1. TYSABRI [Suspect]
     Indication: RELAPSING-REMITTING MULTIPLE SCLEROSIS
     Route: 042
     Dates: start: 20070916
  2. TYSABRI [Suspect]
     Route: 042
     Dates: start: 20090101, end: 20090101
  3. TYSABRI [Suspect]
     Route: 042
     Dates: start: 20090501

REACTIONS (5)
  - CD4 LYMPHOCYTES DECREASED [None]
  - LEUKOCYTOSIS [None]
  - LYMPHOCYTOSIS [None]
  - NEUTROPHIL COUNT INCREASED [None]
  - SINUSITIS [None]
